FAERS Safety Report 8679171 (Version 2)
Quarter: 2013Q3

REPORT INFORMATION
  Report Type: Spontaneous
  Country: US (occurrence: US)
  Receive Date: 20120724
  Receipt Date: 20130923
  Transmission Date: 20140515
  Serious: Yes (Other)
  Sender: FDA-Public Use
  Company Number: US-PFIZER INC-2012175242

PATIENT
  Age: 53 Year
  Sex: Female
  Weight: 59.86 kg

DRUGS (1)
  1. LYRICA [Suspect]
     Indication: RHEUMATOID ARTHRITIS
     Dosage: UNK, 2X/DAY
     Dates: start: 2010, end: 2013

REACTIONS (3)
  - Off label use [Recovered/Resolved]
  - Blindness [Unknown]
  - Tooth loss [Unknown]
